FAERS Safety Report 13151550 (Version 1)
Quarter: 2017Q1

REPORT INFORMATION
  Report Type: Report from Study
  Country: BR (occurrence: BR)
  Receive Date: 20170125
  Receipt Date: 20170125
  Transmission Date: 20170428
  Serious: Yes (Hospitalization, Other)
  Sender: FDA-Public Use
  Company Number: BR-ASTRAZENECA-2017SE05550

PATIENT
  Age: 64 Year
  Sex: Male

DRUGS (5)
  1. TICAGRELOR [Concomitant]
     Active Substance: TICAGRELOR
     Dosage: 180 MG
     Route: 065
  2. LOSARTANA [Concomitant]
     Active Substance: LOSARTAN
     Dosage: 100 MG
     Route: 065
  3. TICAGRELOR [Suspect]
     Active Substance: TICAGRELOR
     Indication: ACUTE CORONARY SYNDROME
     Route: 048
     Dates: start: 20150320
  4. OMEPRAZOLE. [Concomitant]
     Active Substance: OMEPRAZOLE
     Dosage: 20 MG
     Route: 065
  5. ASPIRIN. [Suspect]
     Active Substance: ASPIRIN
     Indication: ACUTE CORONARY SYNDROME
     Dosage: NON-AZ DRUG (MAINTANENCE THERAPY WHICH STARTED PRIOR TO INDEX PROCEDURE)
     Route: 048
     Dates: end: 20150419

REACTIONS (1)
  - Coronary artery restenosis [Recovered/Resolved]

NARRATIVE: CASE EVENT DATE: 20150925
